FAERS Safety Report 4868841-4 (Version None)
Quarter: 2005Q4

REPORT INFORMATION
  Report Type: 
  Country: None (occurrence: None)
  Receive Date: 20051223
  Receipt Date: 20051214
  Transmission Date: 20060501
  Serious: Yes (Other)
  Sender: FDA-Public Use
  Company Number: 2005163398

PATIENT
  Age: 70 Year
  Sex: 0

DRUGS (4)
  1. SOLU-CORTEF [Suspect]
     Indication: FACIAL PALSY
     Dosage: 300 MG (300 MG, 1 IN 1 D)
     Dates: start: 20050723
  2. IMIDAPRIL HYDROCHLORIDE (IMIDAPRIL HYDROCHLORIDE) [Concomitant]
  3. ZOLPIDEM TARTRATE [Concomitant]
  4. NOVOLIN N [Concomitant]

REACTIONS (1)
  - BLOOD PRESSURE INCREASED [None]
